FAERS Safety Report 8966797 (Version 1)
Quarter: 2012Q4

REPORT INFORMATION
  Report Type: 
  Country: IT (occurrence: IT)
  Receive Date: 20121214
  Receipt Date: 20121214
  Transmission Date: 20130627
  Serious: Yes (Hospitalization)
  Sender: FDA-Public Use
  Company Number: IT-ASTRAZENECA-2012SE92117

PATIENT
  Age: 34 Year
  Sex: Female

DRUGS (1)
  1. DIPRIVAN [Suspect]
     Indication: LIGHT ANAESTHESIA
     Route: 042
     Dates: start: 20121123, end: 20121126

REACTIONS (1)
  - Chromaturia [Unknown]
